FAERS Safety Report 17913517 (Version 1)
Quarter: 2020Q2

REPORT INFORMATION
  Report Type: Spontaneous
  Country: JP (occurrence: JP)
  Receive Date: 20200618
  Receipt Date: 20200618
  Transmission Date: 20200714
  Serious: Yes (Other)
  Sender: FDA-Public Use
  Company Number: JP-BAXTER-2020BAX012564

PATIENT
  Age: 30 Year
  Sex: Female

DRUGS (2)
  1. CELLTOP 50 MG, CAPSULE [Suspect]
     Active Substance: ETOPOSIDE
     Indication: ACUTE LYMPHOCYTIC LEUKAEMIA
     Route: 065
  2. ENDOXAN 1G [Suspect]
     Active Substance: CYCLOPHOSPHAMIDE
     Indication: ACUTE LYMPHOCYTIC LEUKAEMIA
     Route: 065

REACTIONS (1)
  - Breast cancer [Unknown]
